FAERS Safety Report 8823230 (Version 3)
Quarter: 2013Q1

REPORT INFORMATION
  Report Type: Report from Study
  Country: US (occurrence: US)
  Receive Date: 20121003
  Receipt Date: 20130116
  Transmission Date: 20140127
  Serious: Yes (Other)
  Sender: FDA-Public Use
  Company Number: US-ROCHE-1085103

PATIENT
  Age: 76 Year
  Sex: Male
  Weight: 78.09 kg

DRUGS (3)
  1. VEMURAFENIB [Suspect]
     Indication: METASTATIC MALIGNANT MELANOMA
     Dosage: DOSE: 720MG
     Route: 048
     Dates: start: 20120702, end: 201208
  2. VEMURAFENIB [Suspect]
     Dosage: DOSE REDUCED
     Route: 048
     Dates: start: 201208
  3. LIDOCAINE [Concomitant]
     Indication: DENTAL OPERATION
     Route: 065
     Dates: start: 20130108, end: 20130108

REACTIONS (18)
  - Renal impairment [Unknown]
  - Erythema [Unknown]
  - Pruritus [Unknown]
  - Mass [Unknown]
  - Joint swelling [Unknown]
  - Arthralgia [Unknown]
  - Alopecia [Unknown]
  - Erythema [Recovering/Resolving]
  - Rash [Recovering/Resolving]
  - Pruritus [Recovering/Resolving]
  - Skin exfoliation [Recovering/Resolving]
  - Squamous cell carcinoma of skin [Not Recovered/Not Resolved]
  - Asthenia [Not Recovered/Not Resolved]
  - Pain in extremity [Not Recovered/Not Resolved]
  - Arthralgia [Not Recovered/Not Resolved]
  - Decreased appetite [Unknown]
  - Confusional state [Not Recovered/Not Resolved]
  - Amnesia [Not Recovered/Not Resolved]
